FAERS Safety Report 4607814-3 (Version None)
Quarter: 2005Q1

REPORT INFORMATION
  Report Type: 
  Country: None (occurrence: None)
  Receive Date: 20050310
  Receipt Date: 20041028
  Transmission Date: 20050727
  Serious: Yes (Hospitalization, Other)
  Sender: FDA-Public Use
  Company Number: HQWYE175829OCT04

PATIENT
  Age: 49 Year
  Sex: Female

DRUGS (4)
  1. ADVIL [Suspect]
     Indication: HEADACHE
     Dosage: THREE TABLETS DAILY; ORAL
     Route: 048
     Dates: start: 20040203, end: 20040204
  2. ADVIL [Suspect]
     Indication: PYREXIA
     Dosage: THREE TABLETS DAILY; ORAL
     Route: 048
     Dates: start: 20040203, end: 20040204
  3. DILTIAZEM [Suspect]
     Indication: HYPERTENSION
     Dates: start: 20040128, end: 20040204
  4. IMODIUM [Suspect]
     Dates: start: 20040203, end: 20040204

REACTIONS (13)
  - ACUTE GENERALISED EXANTHEMATOUS PUSTULOSIS [None]
  - ALPHA 1 GLOBULIN INCREASED [None]
  - ALPHA 2 GLOBULIN INCREASED [None]
  - BLOOD GLUCOSE INCREASED [None]
  - BLOOD PRESSURE SYSTOLIC INCREASED [None]
  - BODY TEMPERATURE INCREASED [None]
  - DERMATITIS EXFOLIATIVE [None]
  - FACE OEDEMA [None]
  - HEART RATE INCREASED [None]
  - HYPOALBUMINAEMIA [None]
  - INFLAMMATION [None]
  - OEDEMA PERIPHERAL [None]
  - WHITE BLOOD CELL COUNT INCREASED [None]
